FAERS Safety Report 11935609 (Version 1)
Quarter: 2016Q1

REPORT INFORMATION
  Report Type: Spontaneous
  Country: US (occurrence: US)
  Receive Date: 20160121
  Receipt Date: 20160121
  Transmission Date: 20160526
  Serious: Yes (Other)
  Sender: FDA-Public Use
  Company Number: US-TEVA-541125USA

PATIENT
  Age: 12 Year
  Sex: Male
  Weight: 33.2 kg

DRUGS (1)
  1. PROPOFOL. [Suspect]
     Active Substance: PROPOFOL
     Indication: LIGHT ANAESTHESIA
     Dosage: INJECTABLE EMULSION 1%, 20 ML VIAL
     Route: 042
     Dates: start: 20150213, end: 20150213

REACTIONS (3)
  - Bronchospasm [Recovered/Resolved]
  - Reaction to preservatives [Recovered/Resolved]
  - Product colour issue [Unknown]

NARRATIVE: CASE EVENT DATE: 20150213
